FAERS Safety Report 5798847-2 (Version None)
Quarter: 2008Q2

REPORT INFORMATION
  Report Type: 
  Country: None (occurrence: None)
  Receive Date: 20080630
  Receipt Date: 20080613
  Transmission Date: 20081010
  Serious: Yes (Hospitalization)
  Sender: FDA-Public Use
  Company Number: 6043642

PATIENT
  Age: 87 Year
  Sex: Female

DRUGS (11)
  1. BISOPROLOL FUMARATE [Suspect]
     Indication: DRUG USE FOR UNKNOWN INDICATION
     Dosage: 0.5 DOSAGE FORMS (0.5 DOSAGE FORMS, 1 D); ORAL
     Route: 048
     Dates: end: 20080530
  2. COTAREG (TABLET) (HYDROCHLOROTHIAZIDE, VALSARTAN) [Suspect]
     Indication: DRUG USE FOR UNKNOWN INDICATION
     Dosage: 1 DOSAGE FORMS (1 DOSAGE FORMS, 1 D); ORAL
     Route: 048
     Dates: end: 20080530
  3. FUROSEMIDE [Suspect]
     Indication: DRUG USE FOR UNKNOWN INDICATION
     Dosage: 40 MG (40 MG, 1 D); ORAL
     Route: 048
     Dates: end: 20080530
  4. LEVOTHYROXINE SODIUM [Concomitant]
  5. ALLOPURINOL [Concomitant]
  6. KARDEGIC (POWDER FOR ORAL SOLUTION) (ACETYLSALICYLATE LYSINE) [Concomitant]
  7. ATORVASTATIN CALCIUM [Concomitant]
  8. OMEPRAZOLE (TABLET) (OMEPRAZOLE) [Concomitant]
  9. SOLUPRED (TABLET) (PREDNISOLONE SODIUM SULFOBENZOATE) [Concomitant]
  10. HEXAQUINE (TABLET) (THIAMINE HYDROCHLORIDE, QUININE BENZOATE, MELALEUC [Concomitant]
  11. DUROGESIC (TRANSDERMAL PATCH) (FENTANYL) [Concomitant]

REACTIONS (4)
  - ACUTE PULMONARY OEDEMA [None]
  - CONDITION AGGRAVATED [None]
  - HYPERKALAEMIA [None]
  - RENAL FAILURE CHRONIC [None]
